FAERS Safety Report 7701488-0 (Version None)
Quarter: 2011Q3

REPORT INFORMATION
  Report Type: 
  Country: None (occurrence: None)
  Receive Date: 20110822
  Receipt Date: 20110812
  Transmission Date: 20111222
  Serious: Yes (Other)
  Sender: FDA-Public Use
  Company Number: JP-MERCK-1108USA01997

PATIENT
  Age: 70 Year
  Sex: Female

DRUGS (11)
  1. JANUVIA [Suspect]
     Indication: DIABETES MELLITUS
     Route: 048
     Dates: start: 20110708, end: 20110727
  2. ASPENON [Suspect]
     Route: 048
     Dates: start: 20110706, end: 20110724
  3. OLMESARTAN MEDOXOMIL [Concomitant]
     Dosage: DAILY DOSAGE UNKNOWN
     Route: 048
  4. LEVOFLOXACIN [Concomitant]
     Route: 048
     Dates: start: 20110714, end: 20110717
  5. WARFARIN [Concomitant]
     Dosage: DAILY DOSAGE UNKNOWN
     Route: 065
     Dates: start: 20110627
  6. AMARYL [Concomitant]
     Indication: DIABETES MELLITUS
     Route: 048
     Dates: start: 20110630
  7. BEPRICOR [Suspect]
     Route: 048
     Dates: start: 20110708, end: 20110725
  8. ADALAT [Concomitant]
     Dosage: DAILY DOSAGE UNKNOW
     Route: 048
  9. NEO-MERCAZOLE TAB [Concomitant]
     Dosage: DAILY DOSAGE UNKNOWN
     Route: 065
  10. SELBEX [Concomitant]
     Dosage: DAILY DOSAGE UNKNOWN
     Route: 065
  11. MAGNESIUM SULFATE [Concomitant]
     Route: 048
     Dates: start: 20110701

REACTIONS (5)
  - ALANINE AMINOTRANSFERASE INCREASED [None]
  - LYMPHOCYTE STIMULATION TEST POSITIVE [None]
  - HEPATIC FUNCTION ABNORMAL [None]
  - ASPARTATE AMINOTRANSFERASE INCREASED [None]
  - BLOOD ALKALINE PHOSPHATASE INCREASED [None]
